FAERS Safety Report 5269886-5 (Version None)
Quarter: 2007Q1

REPORT INFORMATION
  Report Type: 
  Country: None (occurrence: None)
  Receive Date: 20070320
  Receipt Date: 20070313
  Transmission Date: 20070707
  Serious: Yes (Hospitalization)
  Sender: FDA-Public Use
  Company Number: FR-GLAXOSMITHKLINE-B0462207A

PATIENT
  Age: 73 Year
  Sex: Male
  Weight: 82 kg

DRUGS (9)
  1. AUGMENTIN '125' [Suspect]
     Dosage: 1G THREE TIMES PER DAY
     Route: 042
     Dates: start: 20070209, end: 20070214
  2. ROVAMYCINE [Suspect]
     Route: 042
     Dates: start: 20070209, end: 20070214
  3. LASIX [Concomitant]
     Route: 048
     Dates: start: 20070206
  4. PREVISCAN [Concomitant]
     Route: 048
     Dates: start: 20070206
  5. TILDIEM [Concomitant]
     Route: 048
     Dates: start: 20070206
  6. TAHOR [Concomitant]
     Route: 048
     Dates: start: 20070206
  7. ALDALIX [Concomitant]
     Dates: start: 20070206
  8. TOPALGIC ( FRANCE ) [Concomitant]
     Dates: start: 20070208
  9. ATARAX [Concomitant]
     Dates: start: 20070208

REACTIONS (1)
  - ANGIOEDEMA [None]
